FAERS Safety Report 9984363 (Version 3)
Quarter: 2014Q3

REPORT INFORMATION
  Report Type: Report from Study
  Country: JP (occurrence: JP)
  Receive Date: 20140307
  Receipt Date: 20140819
  Transmission Date: 20150326
  Serious: Yes (Hospitalization)
  Sender: FDA-Public Use
  Company Number: JP-BRISTOL-MYERS SQUIBB COMPANY-20379996

PATIENT
  Age: 86 Year
  Sex: Female

DRUGS (4)
  1. ABILIFY DISCMELT [Suspect]
     Active Substance: ARIPIPRAZOLE
     Indication: BIPOLAR DISORDER
     Route: 048
     Dates: start: 20130810, end: 20131011
  2. MAGMITT [Concomitant]
     Active Substance: MAGNESIUM OXIDE
     Dates: start: 20130810
  3. ABILIFY [Suspect]
     Active Substance: ARIPIPRAZOLE
     Indication: BIPOLAR DISORDER
     Dosage: DOSE DECREASED TO 18MG:12OCT13?DECREASED TO 12MG/DAY:16NOV13?22MAR14
     Route: 048
     Dates: start: 20131012, end: 20140322
  4. EVAMYL [Concomitant]
     Active Substance: LORMETAZEPAM
     Dates: start: 20130810

REACTIONS (4)
  - Depressive symptom [Recovered/Resolved]
  - Dehydration [Unknown]
  - Parkinsonian gait [Recovered/Resolved]
  - Abasia [Recovered/Resolved]

NARRATIVE: CASE EVENT DATE: 20131001
